FAERS Safety Report 8984268 (Version 2)
Quarter: 2013Q1

REPORT INFORMATION
  Report Type: Spontaneous
  Country: US (occurrence: US)
  Receive Date: 20121226
  Receipt Date: 20130206
  Transmission Date: 20140127
  Serious: Yes (Other)
  Sender: FDA-Public Use
  Company Number: US-JNJFOC-20121207620

PATIENT
  Sex: Male
  Weight: 109.32 kg

DRUGS (10)
  1. REMICADE [Suspect]
     Indication: RHEUMATOID ARTHRITIS
     Route: 042
     Dates: start: 200910
  2. ASPIRIN [Concomitant]
     Route: 048
  3. CAPTOPRIL [Concomitant]
     Route: 048
  4. CARVEDILOL [Concomitant]
     Route: 048
     Dates: start: 20120507
  5. LATANOPROST [Concomitant]
     Dosage: IN EACH EYE. STRENGTH 0.005%
     Route: 047
     Dates: start: 20111208
  6. MAGNESIUM [Concomitant]
     Route: 048
  7. MULTIPLE VITAMIN [Concomitant]
     Route: 048
  8. SIMVASTATIN [Concomitant]
     Dosage: EVENING
     Route: 048
     Dates: start: 20100929
  9. FOLIC ACID [Concomitant]
     Indication: RHEUMATOID ARTHRITIS
     Route: 048
     Dates: start: 20090204
  10. METHOTREXATE [Concomitant]
     Indication: RHEUMATOID ARTHRITIS
     Route: 048
     Dates: start: 20090107

REACTIONS (1)
  - Bladder cancer [Not Recovered/Not Resolved]
